FAERS Safety Report 21343603 (Version 1)
Quarter: 2022Q3

REPORT INFORMATION
  Report Type: Spontaneous
  Country: US (occurrence: US)
  Receive Date: 20220916
  Receipt Date: 20220916
  Transmission Date: 20221026
  Serious: No
  Sender: FDA-Public Use
  Company Number: US-PFIZER INC-202201163904

PATIENT
  Age: 85 Year
  Sex: Female
  Weight: 68.04 kg

DRUGS (1)
  1. PAXLOVID [Suspect]
     Active Substance: NIRMATRELVIR\RITONAVIR
     Indication: COVID-19 treatment
     Dosage: 3 DF, 2X/DAY (TAKES A DOSE IN THE MORNING OF 3 TABLETS AND A DOSE IN THE EVENING OF 3 TABLETS)
     Route: 048
     Dates: start: 20220911

REACTIONS (1)
  - Diarrhoea [Not Recovered/Not Resolved]

NARRATIVE: CASE EVENT DATE: 20220911
